FAERS Safety Report 15961506 (Version 1)
Quarter: 2019Q1

REPORT INFORMATION
  Report Type: Spontaneous
  Country: US (occurrence: US)
  Receive Date: 20190214
  Receipt Date: 20190214
  Transmission Date: 20190417
  Serious: No
  Sender: FDA-Public Use
  Company Number: US-BAYER-2019-030704

PATIENT
  Age: 58 Year
  Sex: Male
  Weight: 77 kg

DRUGS (1)
  1. LOTRIMIN ULTRA ANTIFUNGAL [Suspect]
     Active Substance: BUTENAFINE HYDROCHLORIDE
     Indication: THERAPEUTIC SKIN CARE TOPICAL
     Dosage: UNK, 1 DOSE ONE TIME DOSE
     Route: 061
     Dates: start: 20190208, end: 20190208

REACTIONS (3)
  - Product physical issue [Unknown]
  - Poor quality product administered [None]
  - Expired product administered [Unknown]

NARRATIVE: CASE EVENT DATE: 20190208
